FAERS Safety Report 5255952-7 (Version None)
Quarter: 2007Q1

REPORT INFORMATION
  Report Type: 
  Country: None (occurrence: None)
  Receive Date: 20070306
  Receipt Date: 20070226
  Transmission Date: 20070707
  Serious: Yes (Death, Life-Threatening, Hospitalization)
  Sender: FDA-Public Use
  Company Number: US-JNJFOC-20070201045

PATIENT
  Sex: Male
  Weight: 75.75 kg

DRUGS (11)
  1. REMICADE [Suspect]
     Route: 042
  2. REMICADE [Suspect]
     Indication: COLITIS ULCERATIVE
     Route: 042
  3. COLAZAL [Concomitant]
     Indication: COLITIS ULCERATIVE
  4. COLAZAL [Concomitant]
     Indication: CROHN'S DISEASE
  5. IMURAN [Concomitant]
     Indication: COLITIS ULCERATIVE
  6. IMURAN [Concomitant]
     Indication: CROHN'S DISEASE
  7. PREDNISONE [Concomitant]
     Indication: COLITIS ULCERATIVE
     Dosage: VARYING DOSE AT TIMES OF ILLNESS
  8. PREDNISONE [Concomitant]
     Indication: CROHN'S DISEASE
  9. IMODIUM [Concomitant]
     Indication: COLITIS ULCERATIVE
     Dosage: DOSE: PRN
  10. IMODIUM [Concomitant]
     Indication: DIARRHOEA
  11. CALCIUM WITH VITAMIN D [Concomitant]
     Indication: PROPHYLAXIS

REACTIONS (3)
  - ENCEPHALITIS [None]
  - LISTERIA SEPSIS [None]
  - MENINGITIS LISTERIA [None]
